FAERS Safety Report 12873860 (Version 1)
Quarter: 2016Q4

REPORT INFORMATION
  Report Type: Spontaneous
  Country: US (occurrence: US)
  Receive Date: 20161021
  Receipt Date: 20161021
  Transmission Date: 20170207
  Serious: No
  Sender: FDA-Public Use
  Company Number: US-ALLERGAN-1649094

PATIENT
  Sex: Male

DRUGS (2)
  1. LIPASE 3,000USP;AMYLASE 16,000USP;PROTEASE 10,000USP CAP [Suspect]
     Active Substance: AMYLASE\LIPASE\PROTEASE
     Indication: PRODUCT USED FOR UNKNOWN INDICATION
     Dosage: 9 CAPSULES A DAY
     Route: 065
  2. LIPASE 3,000USP;AMYLASE 16,000USP;PROTEASE 10,000USP CAP [Suspect]
     Active Substance: AMYLASE\LIPASE\PROTEASE
     Dosage: 18 CAPSULES A DAY
     Route: 065
     Dates: start: 2013

REACTIONS (8)
  - Haemorrhoids [Unknown]
  - Abdominal distension [Unknown]
  - Constipation [Unknown]
  - Thirst [Unknown]
  - Abdominal pain upper [Unknown]
  - Intentional product misuse [Unknown]
  - Headache [Unknown]
  - Flatulence [Unknown]
